FAERS Safety Report 5598188-2 (Version None)
Quarter: 2008Q1

REPORT INFORMATION
  Report Type: 
  Country: None (occurrence: None)
  Receive Date: 20080122
  Receipt Date: 20080114
  Transmission Date: 20080703
  Serious: Yes (Hospitalization)
  Sender: FDA-Public Use
  Company Number: PHRM2008FR00581

PATIENT
  Age: 74 Year
  Sex: Female

DRUGS (13)
  1. VOLTAREN [Suspect]
     Indication: OSTEOARTHRITIS
     Dosage: 100 MG, QD
     Route: 048
     Dates: start: 20070701, end: 20070709
  2. PLAVIX [Suspect]
     Dosage: 75 MG, QD
     Route: 048
  3. ASPEGIC 1000 [Suspect]
     Indication: PROPHYLAXIS
     Dosage: 100 MG, QD
     Route: 048
  4. ALLOPURINOL [Concomitant]
     Dosage: 200 MG, QD
     Route: 048
  5. FOSAMAX ONCE WEEKLY [Concomitant]
     Indication: OSTEOPOROSIS
     Dosage: 70 MG, QW
     Route: 048
  6. PIASCLEDINE [Concomitant]
     Dosage: 300 MG, QD
     Route: 048
     Dates: end: 20070709
  7. EFFERALGAN [Concomitant]
     Dosage: 500 MG, TID2SDO
     Route: 048
  8. ESOMEPRAZOLE [Concomitant]
     Dosage: 20 MG/DAY
     Route: 048
  9. HEMI-DAONIL [Concomitant]
     Dosage: 2.5 MG, TID
     Route: 048
  10. GLUCOPHAGE [Concomitant]
     Dosage: 850 MG, TID
     Route: 048
  11. ZOCOR [Concomitant]
     Dosage: 40 MG/DAY
     Route: 048
  12. COAPROVEL [Concomitant]
     Dosage: 300/12.5 MG/DAY
     Route: 048
  13. AMLOR [Concomitant]
     Dosage: 5 MG/DAY
     Route: 048

REACTIONS (10)
  - ANGINA PECTORIS [None]
  - DIABETES MELLITUS INADEQUATE CONTROL [None]
  - DRUG INTERACTION [None]
  - DUODENITIS [None]
  - FAECES DISCOLOURED [None]
  - GASTROINTESTINAL HAEMORRHAGE [None]
  - HAEMOGLOBIN DECREASED [None]
  - MELAENA [None]
  - NORMOCHROMIC NORMOCYTIC ANAEMIA [None]
  - PALLOR [None]
